FAERS Safety Report 4817340-4 (Version None)
Quarter: 2005Q3

REPORT INFORMATION
  Report Type: 
  Country: None (occurrence: None)
  Receive Date: 20050929
  Receipt Date: 20050819
  Transmission Date: 20060218
  Serious: Yes (Life-Threatening, Hospitalization)
  Sender: FDA-Public Use
  Company Number: 05P-163-0299888-00

PATIENT
  Age: 52 Year
  Sex: Male
  Weight: 124 kg

DRUGS (15)
  1. HUMIRA [Suspect]
     Indication: RHEUMATOID ARTHRITIS
     Dosage: 40 MG, 1 IN 2 WK, SUBCUTANEOUS
     Route: 058
     Dates: start: 20040801, end: 20050101
  2. WARFARIN SODIUM [Concomitant]
  3. RANITIDINE HYDROCHLORIDE [Concomitant]
  4. SULFASALAZINE [Concomitant]
  5. RANITIDINE HYDROCHLORIDE [Concomitant]
  6. . [Concomitant]
  7. SODIUM BICARBONATE [Concomitant]
  8. OXYCODONE [Concomitant]
  9. METOPROLOL TARTRATE [Concomitant]
  10. SERTRALINE HYDROCHLORIDE [Concomitant]
  11. IRON [Concomitant]
  12. LANSOPRAZOLE [Concomitant]
  13. FERROUS SULFATE TAB [Concomitant]
  14. METHADONE [Concomitant]
  15. FAMOTIDINE [Concomitant]

REACTIONS (2)
  - ALPHA HAEMOLYTIC STREPTOCOCCAL INFECTION [None]
  - PANCYTOPENIA [None]
